FAERS Safety Report 5712122-3 (Version None)
Quarter: 2008Q2

REPORT INFORMATION
  Report Type: 
  Country: None (occurrence: None)
  Receive Date: 20080418
  Receipt Date: 20080408
  Transmission Date: 20081010
  Serious: Yes (Other)
  Sender: FDA-Public Use
  Company Number: 2008SP004236

PATIENT
  Sex: Male

DRUGS (1)
  1. CLARITIN-D 24 HOUR [Suspect]
     Indication: DRUG USE FOR UNKNOWN INDICATION
     Dosage: PO
     Route: 048
     Dates: start: 20080223

REACTIONS (2)
  - CONVULSION [None]
  - PHARMACEUTICAL PRODUCT COMPLAINT [None]
